FAERS Safety Report 5745547-0 (Version None)
Quarter: 2008Q2

REPORT INFORMATION
  Report Type: 
  Country: None (occurrence: None)
  Receive Date: 20080521
  Receipt Date: 20080509
  Transmission Date: 20081010
  Serious: Yes (Death, Hospitalization)
  Sender: FDA-Public Use
  Company Number: FR-PFIZER INC-2008040876

PATIENT
  Sex: Male

DRUGS (13)
  1. VFEND ORAL SUSPENSION [Suspect]
     Dosage: DAILY DOSE:200MG
     Route: 048
  2. FORTUM [Suspect]
     Route: 042
     Dates: start: 20071018, end: 20071103
  3. COLISTIN SULFATE [Suspect]
     Dosage: TEXT:10 MIU
  4. PREVISCAN [Concomitant]
     Dosage: DAILY DOSE:20MG
  5. LEVOTHYROXINE SODIUM [Concomitant]
  6. TENORMIN [Concomitant]
     Route: 048
  7. TAREG [Concomitant]
     Dosage: DAILY DOSE:40MG
     Route: 048
  8. ALDACTONE [Concomitant]
     Dosage: DAILY DOSE:25MG
     Route: 048
  9. DEROXAT [Concomitant]
     Dosage: TEXT:20MG/10ML
     Route: 048
  10. LOXEN [Concomitant]
     Dosage: DAILY DOSE:20MG
     Route: 048
  11. VANCOMYCIN HYDROCHLORIDE [Concomitant]
  12. TIENAM [Concomitant]
  13. GENTALLINE [Concomitant]

REACTIONS (1)
  - STATUS EPILEPTICUS [None]
